FAERS Safety Report 6666139-5 (Version None)
Quarter: 2010Q2

REPORT INFORMATION
  Report Type: 
  Country: None (occurrence: None)
  Receive Date: 20100402
  Receipt Date: 20100325
  Transmission Date: 20101027
  Serious: Yes (Hospitalization)
  Sender: FDA-Public Use
  Company Number: US-CEPHALON-2010001758

PATIENT
  Sex: Female
  Weight: 35 kg

DRUGS (2)
  1. NUVIGIL [Suspect]
     Indication: NARCOLEPSY
     Route: 048
     Dates: start: 20100210
  2. TYLENOL W/ CODEINE [Concomitant]
     Route: 048
     Dates: start: 20100223, end: 20100309

REACTIONS (7)
  - ADENOIDAL DISORDER [None]
  - DEPRESSED LEVEL OF CONSCIOUSNESS [None]
  - DRUG PRESCRIBING ERROR [None]
  - DRUG TOLERANCE [None]
  - SOMNOLENCE [None]
  - THERAPEUTIC RESPONSE UNEXPECTED [None]
  - TONSILLAR DISORDER [None]
